FAERS Safety Report 7003504-0 (Version None)
Quarter: 2010Q3

REPORT INFORMATION
  Report Type: 
  Country: None (occurrence: None)
  Receive Date: 20100916
  Receipt Date: 20100901
  Transmission Date: 20110219
  Serious: Yes (Death, Hospitalization, Other)
  Sender: FDA-Public Use
  Company Number: AUR-APL-2010-02163

PATIENT
  Age: 56 Year
  Sex: Male
  Weight: 53 kg

DRUGS (6)
  1. CITALOPRAM HYDROBROMIDE [Suspect]
     Indication: DEPRESSION
     Dosage: 20MG, DAILY
  2. MADOPAR [Suspect]
     Indication: PARKINSON'S DISEASE
     Dosage: 125MG, TID,
  3. MADOPAR CR [Suspect]
     Indication: PARKINSON'S DISEASE
     Dosage: 125MG, QHS
  4. MIRANAXIN  PARKINSON'S DISEASE [Suspect]
     Indication: PARKINSON'S DISEASE
     Dates: start: 20090101, end: 20090801
  5. CLOZAPINE [Concomitant]
  6. DIAZEPAM [Concomitant]

REACTIONS (11)
  - AGGRESSION [None]
  - ANXIETY [None]
  - ASPHYXIA [None]
  - COMPLETED SUICIDE [None]
  - DRUG DEPENDENCE [None]
  - GENERAL PHYSICAL HEALTH DETERIORATION [None]
  - HALLUCINATION, AUDITORY [None]
  - OVERDOSE [None]
  - PARANOIA [None]
  - PRESYNCOPE [None]
  - PSYCHOTIC DISORDER [None]
